FAERS Safety Report 8738274 (Version 3)
Quarter: 2012Q4

REPORT INFORMATION
  Report Type: 
  Country: JP (occurrence: JP)
  Receive Date: 20120823
  Receipt Date: 20121211
  Transmission Date: 20130627
  Serious: Yes (Life-Threatening, Hospitalization, Other)
  Sender: FDA-Public Use
  Company Number: JP-009507513-2012SP019053

PATIENT
  Age: 66 Year
  Sex: Female
  Weight: 57 kg

DRUGS (16)
  1. PEGINTRON [Suspect]
     Indication: CHRONIC HEPATITIS C
     Dosage: 1.5 Microgram per kilogram, qw
     Route: 058
     Dates: start: 20120207, end: 20120417
  2. REBETOL [Suspect]
     Indication: CHRONIC HEPATITIS C
     Dosage: 600 mg, QD
     Route: 048
     Dates: start: 20120207, end: 20120313
  3. REBETOL [Suspect]
     Dosage: 400 mg, QD
     Route: 048
     Dates: start: 20120314, end: 20120327
  4. REBETOL [Suspect]
     Dosage: 200 mg, QD
     Route: 048
     Dates: start: 20120328, end: 20120419
  5. TELAVIC [Suspect]
     Indication: CHRONIC HEPATITIS C
     Dosage: 2250 mg, QD
     Route: 048
     Dates: start: 20120207, end: 20120417
  6. TELAVIC [Suspect]
     Dosage: 1500 mg, QD
     Route: 048
     Dates: start: 20120418, end: 20120419
  7. LEDOLPER [Suspect]
     Indication: PROPHYLAXIS
     Dosage: 1 TABLET PER DAY , AS NEEDED
     Route: 048
     Dates: start: 20120207
  8. LEDOLPER [Suspect]
     Indication: INSOMNIA
     Dosage: 0.25 mg/day as needed
     Route: 048
     Dates: start: 20120423, end: 20120502
  9. AMLODIPINE BESYLATE [Suspect]
     Indication: HYPERTENSION
     Dosage: 5 mg, qd
     Route: 048
     Dates: start: 20120417
  10. LICKLE [Suspect]
     Indication: HYPOALBUMINAEMIA
     Dosage: 13.22 g, qd
     Route: 048
     Dates: start: 20120420, end: 20120426
  11. LASIX (FUROSEMIDE) [Suspect]
     Indication: HYPOALBUMINAEMIA
     Dosage: 20 mg, qd
     Route: 048
     Dates: start: 20120420, end: 20120502
  12. ALDACTONE A [Suspect]
     Indication: HYPOALBUMINAEMIA
     Dosage: 25 mg, qd
     Route: 048
     Dates: start: 20120420, end: 20120517
  13. ACETAMINOPHEN [Concomitant]
     Indication: PROPHYLAXIS
     Dosage: 2 TABLET  PER DAY AS NEEDED
     Route: 048
     Dates: start: 20120207
  14. GASMOTIN [Concomitant]
     Indication: PROPHYLAXIS
     Dosage: 3 DF, qd
     Route: 048
     Dates: start: 20120319
  15. NAUZELIN [Concomitant]
     Indication: PROPHYLAXIS
     Dosage: 1 TABLET/DAY AS NEEDED
     Route: 048
     Dates: start: 20120319
  16. PARIET [Concomitant]
     Indication: PROPHYLAXIS
     Dosage: 10 mg, qd
     Route: 048
     Dates: start: 20120525

REACTIONS (4)
  - Hypoalbuminaemia [Recovered/Resolved]
  - Malaise [Recovering/Resolving]
  - Idiopathic thrombocytopenic purpura [Recovered/Resolved]
  - Haemoglobin decreased [Recovering/Resolving]
